FAERS Safety Report 5898676-5 (Version None)
Quarter: 2008Q3

REPORT INFORMATION
  Report Type: 
  Country: None (occurrence: None)
  Receive Date: 20080925
  Receipt Date: 20080401
  Transmission Date: 20090109
  Serious: No
  Sender: FDA-Public Use
  Company Number: A0718670A

PATIENT
  Age: 54 Year
  Sex: Female

DRUGS (2)
  1. BUPROPION HYDROCHLORIDE [Suspect]
     Indication: DEPRESSION
     Route: 048
  2. ZETIA [Concomitant]

REACTIONS (4)
  - ANXIETY [None]
  - CRYING [None]
  - FATIGUE [None]
  - OBSESSIVE-COMPULSIVE DISORDER [None]
